FAERS Safety Report 8307314-3 (Version None)
Quarter: 2012Q2

REPORT INFORMATION
  Report Type: 
  Country: None (occurrence: None)
  Receive Date: 20120424
  Receipt Date: 20120418
  Transmission Date: 20120825
  Serious: Yes (Other)
  Sender: FDA-Public Use
  Company Number: JP-SANOFI-AVENTIS-2012SA013335

PATIENT
  Age: 83 Year
  Sex: Male
  Weight: 50 kg

DRUGS (8)
  1. APIDRA SOLOSTAR [Suspect]
     Indication: TYPE 1 DIABETES MELLITUS
     Dosage: DOSE: 6-4-4
     Route: 058
     Dates: start: 20111027, end: 20111227
  2. NOVOLIN R [Concomitant]
     Dates: start: 20111227
  3. SOLOSTAR [Suspect]
     Indication: DEVICE THERAPY
  4. DABIGATRAN ETEXILATE [Concomitant]
     Indication: ATRIAL FIBRILLATION
     Route: 058
     Dates: start: 20110708, end: 20110914
  5. NOVORAPID [Concomitant]
     Dosage: DOSE: 4-4-4 UNITS
     Route: 058
     Dates: start: 20111003, end: 20111027
  6. LEVOTHYROXINE SODIUM [Concomitant]
     Dates: start: 20111227
  7. HUMALOG [Concomitant]
     Dosage: DOSE: 6-6-6 UNITS
     Route: 058
     Dates: start: 20110704, end: 20111003
  8. LANTUS [Concomitant]
     Dosage: DOSE:7 UNIT(S)
     Route: 058

REACTIONS (4)
  - ALANINE AMINOTRANSFERASE INCREASED [None]
  - JAUNDICE [None]
  - HEPATIC FUNCTION ABNORMAL [None]
  - ASPARTATE AMINOTRANSFERASE INCREASED [None]
